FAERS Safety Report 5025861-7 (Version None)
Quarter: 2006Q2

REPORT INFORMATION
  Report Type: 
  Country: None (occurrence: None)
  Receive Date: 20060608
  Receipt Date: 19970723
  Transmission Date: 20061013
  Serious: Yes (Hospitalization)
  Sender: FDA-Public Use
  Company Number: 97-07-0488

PATIENT
  Sex: Male

DRUGS (8)
  1. ETHYOL [Suspect]
     Indication: ADVERSE DRUG REACTION
     Dosage: INTRAVENOUS
     Route: 042
     Dates: start: 19970521, end: 19970521
  2. CARBOPLATIN [Concomitant]
  3. TAXOL [Concomitant]
  4. XANAX [Concomitant]
  5. DURAGESIC-100 [Concomitant]
  6. ELDERTONIC [Concomitant]
  7. LORTAB [Concomitant]
  8. AMBIEN [Concomitant]

REACTIONS (7)
  - ANOREXIA [None]
  - ASTHENIA [None]
  - DYSPNOEA [None]
  - HAEMOGLOBIN DECREASED [None]
  - NEUTROPENIA [None]
  - THROMBOCYTOPENIA [None]
  - WHITE BLOOD CELL COUNT DECREASED [None]
